FAERS Safety Report 7810072-X (Version None)
Quarter: 2011Q4

REPORT INFORMATION
  Report Type: 
  Country: None (occurrence: None)
  Receive Date: 20111012
  Receipt Date: 20111007
  Transmission Date: 20120403
  Serious: Yes (Hospitalization, Other)
  Sender: FDA-Public Use
  Company Number: AU-PFIZER INC-2011240491

PATIENT
  Age: 56 Year
  Sex: Female

DRUGS (7)
  1. LYRICA [Concomitant]
     Indication: TRIGEMINAL NEURALGIA
     Dosage: UNK
  2. PRISTIQ [Suspect]
     Dosage: 100MG DAILY
     Route: 048
     Dates: start: 20101101, end: 20110729
  3. AMLODIPINE [Concomitant]
     Indication: HYPERTENSION
     Dosage: UNK
  4. VALIUM [Concomitant]
     Indication: ANXIETY
     Dosage: UNK
  5. TEMAZEPAM [Concomitant]
     Indication: INSOMNIA
     Dosage: UNK
  6. PRISTIQ [Suspect]
     Indication: MAJOR DEPRESSION
     Dosage: 50MG DAILY
     Route: 048
     Dates: start: 20101001, end: 20101101
  7. OXYCODONE [Concomitant]
     Indication: TRIGEMINAL NEURALGIA
     Dosage: UNK

REACTIONS (2)
  - GLAUCOMA [None]
  - CATARACT [None]
